FAERS Safety Report 7774111-7 (Version None)
Quarter: 2011Q3

REPORT INFORMATION
  Report Type: 
  Country: None (occurrence: None)
  Receive Date: 20110923
  Receipt Date: 20110919
  Transmission Date: 20111222
  Serious: Yes (Other)
  Sender: FDA-Public Use
  Company Number: US-ROXANE LABORATORIES, INC.-2011-RO-01292RO

PATIENT
  Sex: Male

DRUGS (2)
  1. METHADONE HCL [Suspect]
     Indication: BONE PAIN
     Dosage: 20 MG
     Route: 048
     Dates: start: 20100202
  2. DASATINIB [Suspect]
     Indication: CHRONIC MYELOID LEUKAEMIA
     Dosage: 100 MG
     Route: 048
     Dates: start: 20100101

REACTIONS (1)
  - DRUG DEPENDENCE [None]
